FAERS Safety Report 23305302 (Version 3)
Quarter: 2024Q1

REPORT INFORMATION
  Report Type: Spontaneous
  Country: US (occurrence: None)
  Receive Date: 20231218
  Receipt Date: 20240126
  Transmission Date: 20240410
  Serious: No
  Sender: FDA-Public Use
  Company Number: 2023A276403

PATIENT
  Age: 65 Year
  Sex: Male

DRUGS (1)
  1. BREZTRI [Suspect]
     Active Substance: BUDESONIDE\FORMOTEROL\GLYCOPYRROLATE
     Indication: Chronic obstructive pulmonary disease
     Dosage: 120 INHALATIONS160.0MG UNKNOWN
     Route: 055
     Dates: start: 20231112, end: 20231202

REACTIONS (5)
  - Visual impairment [Unknown]
  - Incorrect dose administered by device [Unknown]
  - Device use issue [Unknown]
  - Intentional product misuse [Unknown]
  - Device malfunction [Unknown]

NARRATIVE: CASE EVENT DATE: 20231114
